FAERS Safety Report 9556252 (Version 1)
Quarter: 2013Q3

REPORT INFORMATION
  Report Type: Spontaneous
  Country: US (occurrence: None)
  Receive Date: 20130724
  Receipt Date: 20130724
  Transmission Date: 20140515
  Serious: No
  Sender: FDA-Public Use
  Company Number: PHEH2013US006611

PATIENT
  Age: 45 Year
  Sex: Female

DRUGS (5)
  1. GILENYA (FINGOLIMOD) CAPSULE, 0.5MG [Suspect]
     Indication: MULTIPLE SCLEROSIS
     Dosage: 0.5 MG, QD, ORAL
     Route: 048
     Dates: start: 20120806
  2. OXYCODONE (OXYCODONE) [Concomitant]
  3. SOMA (CARISOPRODOL) [Concomitant]
  4. BACLOFEN (BACLOFEN) [Concomitant]
  5. PAXEL (PACLITAXEL) [Concomitant]

REACTIONS (1)
  - Gait disturbance [None]
